FAERS Safety Report 8604188-8 (Version None)
Quarter: 2012Q3

REPORT INFORMATION
  Report Type: 
  Country: None (occurrence: None)
  Receive Date: 20120820
  Receipt Date: 20120813
  Transmission Date: 20120928
  Serious: No
  Sender: FDA-Public Use
  Company Number: US-PFIZER INC-2012198519

PATIENT
  Age: 64 Year
  Sex: Female
  Weight: 72.562 kg

DRUGS (3)
  1. PREMARIN [Suspect]
     Indication: VULVOVAGINAL DRYNESS
     Dosage: UNK
     Route: 067
  2. PREMARIN [Suspect]
     Indication: BONE DISORDER
     Dosage: 0.625 MG, DAILY
     Route: 048
  3. HUMULIN 70/30 [Concomitant]
     Indication: DIABETES MELLITUS
     Dosage: UNK, TWICE DAILY

REACTIONS (1)
  - GALLBLADDER DISORDER [None]
